FAERS Safety Report 9156966 (Version 1)
Quarter: 2013Q1

REPORT INFORMATION
  Report Type: Spontaneous
  Country: US (occurrence: None)
  Receive Date: 20130308
  Receipt Date: 20130308
  Transmission Date: 20140127
  Serious: Yes (Other)
  Sender: FDA-Public Use
  Company Number: None

PATIENT
  Age: 61 Year
  Sex: Female
  Weight: 68.04 kg

DRUGS (1)
  1. VYVANSE 70MG SHIRE [Suspect]
     Dosage: 1- AS MUCH AS WANTED QD PO
     Route: 048
     Dates: start: 20091220, end: 20100530

REACTIONS (3)
  - Delusion [None]
  - Psychotic disorder [None]
  - Stress [None]
